FAERS Safety Report 4482413-5 (Version None)
Quarter: 2004Q4

REPORT INFORMATION
  Report Type: 
  Country: None (occurrence: None)
  Receive Date: 20041022
  Receipt Date: 20040809
  Transmission Date: 20050328
  Serious: No
  Sender: FDA-Public Use
  Company Number: US-BRISTOL-MYERS SQUIBB COMPANY-12665634

PATIENT
  Age: 40 Year
  Sex: Female
  Weight: 50 kg

DRUGS (1)
  1. BUSPAR [Suspect]
     Indication: GENERALISED ANXIETY DISORDER
     Dosage: FOR THE PAST 3 MONTHS
     Route: 048
     Dates: start: 20040101

REACTIONS (2)
  - ARTHRALGIA [None]
  - MYALGIA [None]
